FAERS Safety Report 8581833-7 (Version None)
Quarter: 2012Q3

REPORT INFORMATION
  Report Type: 
  Country: None (occurrence: None)
  Receive Date: 20120727
  Receipt Date: 20120711
  Transmission Date: 20120928
  Serious: Yes (Death, Other)
  Sender: FDA-Public Use
  Company Number: TPA2012A03441

PATIENT
  Age: 85 Year
  Sex: Female
  Weight: 89.8122 kg

DRUGS (3)
  1. GLARGENE/LANTUS (INSULIN GLARGINE) [Concomitant]
  2. ACTOS [Suspect]
     Indication: TYPE 2 DIABETES MELLITUS
     Dosage: 15 MG
     Dates: start: 20010321, end: 20080525
  3. EMPIRIN COMPOUND (ACETYLSALICYLIC ACID, CAFFEINE, PHENACETIN) [Concomitant]

REACTIONS (1)
  - BLADDER CANCER [None]
